FAERS Safety Report 16233734 (Version 1)
Quarter: 2019Q2

REPORT INFORMATION
  Report Type: Spontaneous
  Country: US (occurrence: US)
  Receive Date: 20190423
  Receipt Date: 20190423
  Transmission Date: 20190711
  Serious: Yes (Death)
  Sender: FDA-Public Use
  Company Number: None

PATIENT
  Sex: Female
  Weight: 51.9 kg

DRUGS (3)
  1. VITAMIN C [Concomitant]
     Active Substance: ASCORBIC ACID
     Dates: end: 20190423
  2. VITAMIN D NOS [Concomitant]
     Active Substance: VITAMIN D NOS
     Dates: end: 20190423
  3. LONSURF [Suspect]
     Active Substance: TIPIRACIL HYDROCHLORIDE\TRIFLURIDINE
     Indication: COLON CANCER
     Dosage: 45 MG BID MON-FRI 2/4WK.; ORAL?
     Route: 048
     Dates: start: 20190325, end: 20190423

REACTIONS (1)
  - Death [None]
